FAERS Safety Report 11716862 (Version 1)
Quarter: 2015Q4

REPORT INFORMATION
  Report Type: Spontaneous
  Country: US (occurrence: US)
  Receive Date: 20151109
  Receipt Date: 20151109
  Transmission Date: 20160304
  Serious: Yes (Death, Other)
  Sender: FDA-Public Use
  Company Number: US-BRISTOL-MYERS SQUIBB COMPANY-BMS-2015-076985

PATIENT
  Sex: Male
  Weight: 91.89 kg

DRUGS (1)
  1. OPDIVO [Suspect]
     Active Substance: NIVOLUMAB
     Indication: NON-SMALL CELL LUNG CANCER
     Dosage: UNK
     Route: 065
     Dates: start: 20150925

REACTIONS (5)
  - Eyelid ptosis [Unknown]
  - Diaphragmatic paralysis [Unknown]
  - Hepatic function abnormal [Unknown]
  - Death [Fatal]
  - Myositis [Unknown]
